FAERS Safety Report 8295754-0 (Version None)
Quarter: 2012Q2

REPORT INFORMATION
  Report Type: 
  Country: None (occurrence: None)
  Receive Date: 20120416
  Receipt Date: 20120416
  Transmission Date: 20120825
  Serious: Yes (Hospitalization, Disabling, Other)
  Sender: FDA-Public Use
  Company Number: None

PATIENT
  Age: 75 Year
  Sex: Male
  Weight: 94.8018 kg

DRUGS (4)
  1. ASPIRIN [Concomitant]
  2. LUPRON [Suspect]
     Indication: PROSTATE CANCER RECURRENT
     Dosage: LUPRON 30 MGS IM
     Route: 030
     Dates: start: 20111121
  3. IBUPROFEN (ADVIL) [Concomitant]
  4. M.V.I. [Concomitant]

REACTIONS (2)
  - HOMICIDAL IDEATION [None]
  - SUICIDAL IDEATION [None]
